FAERS Safety Report 7489009-1 (Version None)
Quarter: 2011Q2

REPORT INFORMATION
  Report Type: 
  Country: None (occurrence: None)
  Receive Date: 20110518
  Receipt Date: 20110421
  Transmission Date: 20111010
  Serious: Yes (Other)
  Sender: FDA-Public Use
  Company Number: US-BAYER-201012273NA

PATIENT
  Age: 25 Year
  Sex: Female
  Weight: 117.91 kg

DRUGS (6)
  1. YAZ [Suspect]
     Indication: PRODUCT USED FOR UNKNOWN INDICATION
     Route: 048
     Dates: start: 20080301, end: 20090415
  2. METFORMIN HCL [Concomitant]
     Indication: PREGNANCY
     Dosage: 750 MG, UNK
     Dates: start: 20060101, end: 20100101
  3. MOMETASONE FUROATE [Concomitant]
     Dosage: 0.1 %, UNK
  4. FLUCONAZOLE [Concomitant]
     Dosage: 100 MG, UNK
  5. YASMIN [Suspect]
     Indication: CONTRACEPTION
     Route: 048
     Dates: start: 20080301, end: 20090415
  6. DROSPIRENONE AND ETHINYL ESTRADIOL [Suspect]
     Indication: CONTRACEPTION
     Dosage: UNK
     Dates: start: 20080701, end: 20090501

REACTIONS (12)
  - VOMITING [None]
  - QUALITY OF LIFE DECREASED [None]
  - CHOLELITHIASIS [None]
  - GALLBLADDER DISORDER [None]
  - CHOLECYSTITIS CHRONIC [None]
  - GASTROOESOPHAGEAL REFLUX DISEASE [None]
  - NAUSEA [None]
  - CHEST PAIN [None]
  - GALLBLADDER CHOLESTEROLOSIS [None]
  - ANXIETY [None]
  - PROCEDURAL PAIN [None]
  - PAIN [None]
